FAERS Safety Report 12581042 (Version 1)
Quarter: 2016Q3

REPORT INFORMATION
  Report Type: Spontaneous
  Country: GB (occurrence: GB)
  Receive Date: 20160721
  Receipt Date: 20160721
  Transmission Date: 20161109
  Serious: Yes (Other)
  Sender: FDA-Public Use
  Company Number: PHHY2016GB096027

PATIENT
  Age: 46 Year
  Sex: Female

DRUGS (1)
  1. VANCOMYCIN [Suspect]
     Active Substance: VANCOMYCIN
     Indication: INTERVERTEBRAL DISCITIS
     Dosage: 1500 MG, UNK
     Route: 042
     Dates: start: 20160624, end: 20160624

REACTIONS (2)
  - Anaphylactic reaction [Recovered/Resolved]
  - Red man syndrome [Recovered/Resolved]

NARRATIVE: CASE EVENT DATE: 20160624
